FAERS Safety Report 15046063 (Version 1)
Quarter: 2018Q2

REPORT INFORMATION
  Report Type: Spontaneous
  Country: GB (occurrence: FR)
  Receive Date: 20180621
  Receipt Date: 20180621
  Transmission Date: 20180711
  Serious: Yes (Hospitalization)
  Sender: FDA-Public Use
  Company Number: FR-FRESENIUS KABI-FK201806844

PATIENT
  Age: 24 Year
  Sex: Male
  Weight: 82 kg

DRUGS (1)
  1. PROPOFOL (MANUFACTURER UNKNOWN) [Suspect]
     Active Substance: PROPOFOL
     Indication: SEDATION
     Route: 042
     Dates: start: 20180522, end: 20180525

REACTIONS (6)
  - Hepatocellular injury [Recovered/Resolved]
  - Chromaturia [Recovered/Resolved]
  - Cholestasis [Recovered/Resolved]
  - Blood triglycerides increased [Recovered/Resolved]
  - Rhabdomyolysis [Recovered/Resolved]
  - Propofol infusion syndrome [Recovered/Resolved]

NARRATIVE: CASE EVENT DATE: 20180525
